FAERS Safety Report 8149897-2 (Version None)
Quarter: 2012Q1

REPORT INFORMATION
  Report Type: 
  Country: None (occurrence: None)
  Receive Date: 20120218
  Receipt Date: 20111213
  Transmission Date: 20120608
  Serious: No
  Sender: FDA-Public Use
  Company Number: US-ALLERGAN-1116347US

PATIENT
  Age: 40 Year
  Sex: Female

DRUGS (12)
  1. BOTOX COSMETIC [Suspect]
     Dosage: 2.5 UNITS, SINGLE
     Route: 030
     Dates: start: 20111130, end: 20111130
  2. BOTOX COSMETIC [Suspect]
     Dosage: 15 UNITS, SINGLE
     Route: 030
     Dates: start: 20111104, end: 20111104
  3. BOTOX COSMETIC [Suspect]
     Dosage: 7 UNITS, SINGLE
     Route: 030
     Dates: start: 20111104, end: 20111104
  4. BOTOX COSMETIC [Suspect]
     Dosage: 15 UNITS, SINGLE
     Route: 030
     Dates: start: 20111025, end: 20111025
  5. BOTOX COSMETIC [Suspect]
     Indication: SKIN WRINKLING
     Dosage: 5 UNITS, SINGLE
     Route: 030
     Dates: start: 20111130, end: 20111130
  6. BOTOX COSMETIC [Suspect]
     Dosage: 5 UNITS, SINGLE
     Route: 030
     Dates: start: 20111130, end: 20111130
  7. BOTOX COSMETIC [Suspect]
     Dosage: 15 UNITS, SINGLE
     Route: 030
     Dates: start: 20111025, end: 20111025
  8. BOTOX COSMETIC [Suspect]
     Dosage: 15 UNITS, SINGLE
     Route: 030
     Dates: start: 20111025, end: 20111025
  9. BOTOX COSMETIC [Suspect]
     Dosage: 5 UNITS, SINGLE
     Route: 030
     Dates: start: 20111130, end: 20111130
  10. BOTOX COSMETIC [Suspect]
     Dosage: 15 UNITS, SINGLE
     Route: 030
     Dates: start: 20111104, end: 20111104
  11. BOTOX COSMETIC [Suspect]
     Dosage: 15 UNITS, SINGLE
     Route: 030
     Dates: start: 20111104, end: 20111104
  12. BOTOX COSMETIC [Suspect]
     Dosage: 15 UNITS, SINGLE
     Route: 030
     Dates: start: 20111025, end: 20111025

REACTIONS (1)
  - THERAPEUTIC RESPONSE DECREASED [None]
